FAERS Safety Report 5298991-2 (Version None)
Quarter: 2007Q2

REPORT INFORMATION
  Report Type: 
  Country: None (occurrence: None)
  Receive Date: 20070412
  Receipt Date: 20070412
  Transmission Date: 20071010
  Serious: Yes (Other)
  Sender: FDA-Public Use
  Company Number: None

PATIENT
  Age: 35 Year
  Sex: Male
  Weight: 79 kg

DRUGS (4)
  1. TIGECYCLINE 50MG WYETH [Suspect]
     Indication: URINARY TRACT INFECTION
     Dosage: 50MG BID IV DRIP
     Route: 041
     Dates: start: 20070406, end: 20070410
  2. TACROLIMUS [Concomitant]
  3. MYCOPHENOLATE SODIUM [Concomitant]
  4. ESOMEPRAZOLE MAGNESIUM [Concomitant]

REACTIONS (3)
  - INFUSION RELATED REACTION [None]
  - VEIN DISORDER [None]
  - VEIN PAIN [None]
